FAERS Safety Report 6172229-6 (Version None)
Quarter: 2009Q2

REPORT INFORMATION
  Report Type: 
  Country: None (occurrence: None)
  Receive Date: 20090429
  Receipt Date: 20090422
  Transmission Date: 20091009
  Serious: No
  Sender: FDA-Public Use
  Company Number: JP-ASTRAZENECA-2009AP02314

PATIENT
  Age: 27942 Day
  Sex: Male

DRUGS (3)
  1. CASODEX [Suspect]
     Indication: PROSTATE CANCER
     Route: 048
     Dates: start: 20070427, end: 20071224
  2. CASODEX [Suspect]
     Route: 048
     Dates: start: 20080624, end: 20080818
  3. LEUPLIN [Concomitant]
     Route: 058
     Dates: start: 20070501

REACTIONS (1)
  - RENAL IMPAIRMENT [None]
